FAERS Safety Report 13572121 (Version 4)
Quarter: 2017Q3

REPORT INFORMATION
  Report Type: Spontaneous
  Country: US (occurrence: US)
  Receive Date: 20170523
  Receipt Date: 20170712
  Transmission Date: 20171127
  Serious: Yes (Death, Hospitalization)
  Sender: FDA-Public Use
  Company Number: US-CLOVIS ONCOLOGY-CLO-2017-000427

PATIENT
  Age: 77 Year
  Sex: Female

DRUGS (1)
  1. RUBRACA [Suspect]
     Active Substance: RUCAPARIB CAMSYLATE
     Indication: OVARIAN CANCER
     Dosage: 600 MG, BID
     Route: 048
     Dates: start: 20170414

REACTIONS (13)
  - Small intestinal obstruction [Fatal]
  - Nausea [Not Recovered/Not Resolved]
  - Oesophagitis [Unknown]
  - Liver function test abnormal [Unknown]
  - Intestinal perforation [Fatal]
  - Dehydration [Unknown]
  - Malignant neoplasm progression [Fatal]
  - Anaemia [Unknown]
  - Enterococcal sepsis [Fatal]
  - Vomiting [Not Recovered/Not Resolved]
  - Abdominal pain [Unknown]
  - Malnutrition [Unknown]
  - Gastritis [Unknown]

NARRATIVE: CASE EVENT DATE: 20170420
